FAERS Safety Report 19062880 (Version 2)
Quarter: 2021Q1

REPORT INFORMATION
  Report Type: Spontaneous
  Country: AU (occurrence: AU)
  Receive Date: 20210326
  Receipt Date: 20210331
  Transmission Date: 20210420
  Serious: Yes (Other)
  Sender: FDA-Public Use
  Company Number: AU-TOLMAR, INC.-21AU026181

PATIENT
  Sex: Male

DRUGS (2)
  1. CADUET [Concomitant]
     Active Substance: AMLODIPINE BESYLATE\ATORVASTATIN CALCIUM
     Indication: PRODUCT USED FOR UNKNOWN INDICATION
     Dosage: UNK
     Route: 065
  2. ELIGARD [Suspect]
     Active Substance: LEUPROLIDE ACETATE
     Indication: PROSTATE CANCER
     Dosage: 45 MG, Q 6 MONTH
     Route: 058
     Dates: start: 202009

REACTIONS (11)
  - Fatigue [Not Recovered/Not Resolved]
  - Anxiety [Not Recovered/Not Resolved]
  - Groin pain [Unknown]
  - Suicidal ideation [Not Recovered/Not Resolved]
  - Hot flush [Unknown]
  - Mental disability [Not Recovered/Not Resolved]
  - Depression [Not Recovered/Not Resolved]
  - Personality change [Not Recovered/Not Resolved]
  - Renal pain [Unknown]
  - Lethargy [Not Recovered/Not Resolved]
  - Mood swings [Unknown]
